FAERS Safety Report 5874577-3 (Version None)
Quarter: 2008Q3

REPORT INFORMATION
  Report Type: 
  Country: None (occurrence: None)
  Receive Date: 20080905
  Receipt Date: 20080905
  Transmission Date: 20090109
  Serious: Yes (Hospitalization)
  Sender: FDA-Public Use
  Company Number: None

PATIENT
  Sex: Female
  Weight: 77 kg

DRUGS (6)
  1. OXALIPLATIN [Suspect]
     Indication: RECTAL CANCER
     Dosage: 40MG/M2 QOWK X 3 IV
     Route: 042
     Dates: start: 20080814
  2. OXALIPLATIN [Suspect]
     Indication: RECTAL CANCER
     Dosage: 40MG/M2 QOWK X 3 IV
     Route: 042
     Dates: start: 20080820
  3. OXALIPLATIN [Suspect]
     Indication: RECTAL CANCER
     Dosage: 40MG/M2 QOWK X 3 IV
     Route: 042
     Dates: start: 20080827
  4. AVASTIN [Suspect]
     Dosage: 5MG/KG 2QWKS
     Dates: start: 20080814
  5. AVASTIN [Suspect]
     Dosage: 5MG/KG 2QWKS
     Dates: start: 20080827
  6. FLUOROURACIL [Suspect]
     Indication: RECTAL CANCER
     Dosage: IV
     Route: 042
     Dates: start: 20080814, end: 20080829

REACTIONS (5)
  - BLOOD POTASSIUM DECREASED [None]
  - DEHYDRATION [None]
  - DIARRHOEA HAEMORRHAGIC [None]
  - NO THERAPEUTIC RESPONSE [None]
  - WHITE BLOOD CELL COUNT DECREASED [None]
